FAERS Safety Report 9782949 (Version 1)
Quarter: 2013Q4

REPORT INFORMATION
  Report Type: Spontaneous
  Country: US (occurrence: None)
  Receive Date: 20131224
  Receipt Date: 20131224
  Transmission Date: 20140711
  Serious: No
  Sender: FDA-Public Use
  Company Number: None

PATIENT
  Age: 62 Year
  Sex: Female

DRUGS (10)
  1. TECFIDERA 120MG BIOGEN [Suspect]
     Indication: MULTIPLE SCLEROSIS
     Dosage: 1 CAPSULE
     Route: 048
     Dates: start: 20131221, end: 20131223
  2. RESTORIL [Concomitant]
  3. IMDUR [Concomitant]
  4. CALCIUM ACETATE [Concomitant]
  5. PAXIL [Concomitant]
  6. NEURONTIN [Concomitant]
  7. REQUIP [Concomitant]
  8. PRAVACHOL [Concomitant]
  9. PLAVIX [Concomitant]
  10. METOPROLOL SUCC [Concomitant]

REACTIONS (4)
  - Flushing [None]
  - Oral pruritus [None]
  - Headache [None]
  - Diarrhoea [None]
